FAERS Safety Report 11259540 (Version 7)
Quarter: 2019Q3

REPORT INFORMATION
  Report Type: Spontaneous
  Country: US (occurrence: US)
  Receive Date: 20150710
  Receipt Date: 20190702
  Transmission Date: 20191004
  Serious: Yes (Hospitalization, Other)
  Sender: FDA-Public Use
  Company Number: US-DSJP-DSU-2015-121031

PATIENT
  Age: 70 Year
  Sex: Female
  Weight: 68.03 kg

DRUGS (5)
  1. BENICAR [Suspect]
     Active Substance: OLMESARTAN MEDOXOMIL
     Dosage: 40 MG, QD
     Route: 048
     Dates: start: 20120621, end: 20130113
  2. AZOR [Suspect]
     Active Substance: AMLODIPINE BESYLATE\OLMESARTAN MEDOXOMIL
     Indication: HYPERTENSION
     Dosage: 5/40 MG
     Route: 048
     Dates: start: 201111, end: 20120621
  3. NORVASC [Concomitant]
     Active Substance: AMLODIPINE BESYLATE
     Indication: PRODUCT USED FOR UNKNOWN INDICATION
     Dosage: 10 MG, QD
     Dates: start: 201206
  4. SIMVASTATIN. [Concomitant]
     Active Substance: SIMVASTATIN
     Indication: PRODUCT USED FOR UNKNOWN INDICATION
     Dosage: 10-40 MG, QD
     Dates: start: 201008
  5. BENICAR [Suspect]
     Active Substance: OLMESARTAN MEDOXOMIL
     Indication: HYPERTENSION
     Dosage: 20 MG, UNK
     Dates: start: 20110216, end: 201111

REACTIONS (20)
  - Acute kidney injury [Recovered/Resolved]
  - Reactive gastropathy [Unknown]
  - Bacteraemia [Unknown]
  - Pulmonary oedema [Unknown]
  - Coeliac disease [Recovering/Resolving]
  - Bile duct stone [Unknown]
  - Gastrooesophageal reflux disease [Unknown]
  - Hiatus hernia [Not Recovered/Not Resolved]
  - Sprue-like enteropathy [Recovering/Resolving]
  - Hypotension [Not Recovered/Not Resolved]
  - Barrett^s oesophagus [Not Recovered/Not Resolved]
  - Gastric polyps [Not Recovered/Not Resolved]
  - Cardiac failure congestive [Not Recovered/Not Resolved]
  - Mental status changes [Recovered/Resolved]
  - Skin ulcer [Unknown]
  - Clostridium difficile infection [Unknown]
  - Syncope [Recovering/Resolving]
  - Oesophageal stenosis [Unknown]
  - Emotional distress [Not Recovered/Not Resolved]
  - Diverticulum [Unknown]

NARRATIVE: CASE EVENT DATE: 201110
